FAERS Safety Report 4990574-4 (Version None)
Quarter: 2006Q2

REPORT INFORMATION
  Report Type: 
  Country: None (occurrence: None)
  Receive Date: 20060503
  Receipt Date: 20060305
  Transmission Date: 20061013
  Serious: Yes (Hospitalization)
  Sender: FDA-Public Use
  Company Number: CA-ABBOTT-06P-028-0327129-00

PATIENT
  Sex: Female
  Weight: 102 kg

DRUGS (16)
  1. HUMIRA [Suspect]
     Indication: RHEUMATOID ARTHRITIS
     Route: 058
     Dates: start: 20040331, end: 20060131
  2. RISEDRONATE SODIUM [Concomitant]
     Indication: ARTHRITIS
     Dates: start: 20040101
  3. RISEDRONATE SODIUM [Concomitant]
     Indication: PROPHYLAXIS
  4. CARBOCAL [Concomitant]
     Indication: HYPOCALCAEMIA
     Dates: start: 20040101
  5. CARBOCAL [Concomitant]
     Indication: PROPHYLAXIS
  6. CELECOXIB [Concomitant]
     Indication: RHEUMATOID ARTHRITIS
     Dates: start: 20060201
  7. CO-DIOVAN [Concomitant]
     Indication: HYPERTENSION
     Dosage: 160/12.5MG 2 TABLETS QAM
     Dates: start: 20040101
  8. HYDROMORPHONE HYDROCHLORIDE [Concomitant]
     Indication: PAIN
     Dosage: 2-4MG
  9. ESTRADIOL [Concomitant]
     Indication: MENOPAUSE
  10. FOLIC ACID [Concomitant]
     Indication: ANAEMIA PROPHYLAXIS
     Dates: start: 20040101
  11. ATORVASTATIN CALCIUM [Concomitant]
     Indication: DRUG USE FOR UNKNOWN INDICATION
  12. PREDNISONE TAB [Concomitant]
     Indication: RHEUMATOID ARTHRITIS
     Dates: start: 20040101
  13. LEVOTHYROXINE SODIUM [Concomitant]
     Indication: HYPOTHYROIDISM
     Dates: start: 19960101
  14. ACETAMINOPHEN [Concomitant]
     Indication: PAIN
     Dosage: 1-2 TABLETS BID
  15. URSODEOXYCHOLIC ACID [Concomitant]
     Indication: DRUG USE FOR UNKNOWN INDICATION
  16. METHOTREXATE [Concomitant]
     Indication: RHEUMATOID ARTHRITIS
     Dates: start: 20040101

REACTIONS (2)
  - ANKLE OPERATION [None]
  - POSTOPERATIVE INFECTION [None]
